FAERS Safety Report 16045909 (Version 1)
Quarter: 2019Q1

REPORT INFORMATION
  Report Type: Spontaneous
  Country: US (occurrence: US)
  Receive Date: 20190206
  Receipt Date: 20190206
  Transmission Date: 20190418
  Serious: Yes (Death)
  Sender: FDA-Public Use
  Company Number: None

PATIENT
  Age: 76 Year
  Sex: Male

DRUGS (11)
  1. RISPERIDONE. [Concomitant]
     Active Substance: RISPERIDONE
  2. BISACODYL. [Concomitant]
     Active Substance: BISACODYL
  3. SERTRALINE [Concomitant]
     Active Substance: SERTRALINE HYDROCHLORIDE
  4. SPIRIVA [Concomitant]
     Active Substance: TIOTROPIUM BROMIDE MONOHYDRATE
  5. ESBRIET [Suspect]
     Active Substance: PIRFENIDONE
     Indication: MYOCARDIAL ISCHAEMIA
     Route: 048
     Dates: start: 20181229
  6. CARTIA XT [Concomitant]
     Active Substance: DILTIAZEM HYDROCHLORIDE
  7. CYCLOBENZAPRINE. [Concomitant]
     Active Substance: CYCLOBENZAPRINE
  8. MUCUS RELIEF [Concomitant]
     Active Substance: GUAIFENESIN
  9. LISINOPRIL. [Concomitant]
     Active Substance: LISINOPRIL
  10. XARELTO [Concomitant]
     Active Substance: RIVAROXABAN
  11. POLYETH GLYC [Concomitant]
     Active Substance: POLYETHYLENE GLYCOLS

REACTIONS (1)
  - Road traffic accident [None]

NARRATIVE: CASE EVENT DATE: 20190101
